FAERS Safety Report 10607394 (Version 2)
Quarter: 2014Q4

REPORT INFORMATION
  Report Type: Spontaneous
  Country: BR (occurrence: BR)
  Receive Date: 20141125
  Receipt Date: 20141204
  Transmission Date: 20150529
  Serious: Yes (Death)
  Sender: FDA-Public Use
  Company Number: BR-PFIZER INC-2014319620

PATIENT
  Age: 33 Year
  Sex: Female

DRUGS (3)
  1. DOXYCYCLINE MONOHYDRATE [Suspect]
     Active Substance: DOXYCYCLINE
     Dosage: UNK
  2. ERBITUX [Suspect]
     Active Substance: CETUXIMAB
     Indication: LIP AND/OR ORAL CAVITY CANCER
  3. ERBITUX [Suspect]
     Active Substance: CETUXIMAB
     Indication: CHEMOTHERAPY
     Dosage: UNK
     Dates: start: 201402

REACTIONS (1)
  - Death [Fatal]
